FAERS Safety Report 16299163 (Version 2)
Quarter: 2019Q2

REPORT INFORMATION
  Report Type: Spontaneous
  Country: GB (occurrence: GB)
  Receive Date: 20190510
  Receipt Date: 20190514
  Transmission Date: 20190711
  Serious: Yes (Other)
  Sender: FDA-Public Use
  Company Number: GB-TEVA-2019-GB-1048088

PATIENT
  Age: 64 Year
  Sex: Female
  Weight: 62.59 kg

DRUGS (5)
  1. IBUPROFEN. [Concomitant]
     Active Substance: IBUPROFEN
  2. PARACETAMOL [Concomitant]
     Active Substance: ACETAMINOPHEN
  3. QUESTRAN [Concomitant]
     Active Substance: CHOLESTYRAMINE
  4. CO-AMOXICLAV [Suspect]
     Active Substance: AMOXICILLIN\CLAVULANATE POTASSIUM
     Indication: SKIN WOUND
     Route: 048
     Dates: start: 20190330, end: 20190406
  5. AMITRIPTYLINE [Concomitant]
     Active Substance: AMITRIPTYLINE
     Dates: end: 201903

REACTIONS (3)
  - Proctalgia [Unknown]
  - Diarrhoea [Unknown]
  - Anal haemorrhage [Unknown]

NARRATIVE: CASE EVENT DATE: 20190330
